FAERS Safety Report 25683909 (Version 1)
Quarter: 2025Q3

REPORT INFORMATION
  Report Type: Spontaneous
  Country: EU (occurrence: EU)
  Receive Date: 20250815
  Receipt Date: 20250815
  Transmission Date: 20251020
  Serious: Yes (Other)
  Sender: ALEXION PHARMACEUTICALS
  Company Number: EU-SUN PHARMACEUTICAL INDUSTRIES LTD-2025R1-519528

PATIENT
  Age: 60 Year
  Sex: Female

DRUGS (7)
  1. FASLODEX [Suspect]
     Active Substance: FULVESTRANT
     Indication: HER2 positive breast cancer
     Route: 065
  2. FASLODEX [Suspect]
     Active Substance: FULVESTRANT
     Indication: Metastasis
  3. PALBOCICLIB [Suspect]
     Active Substance: PALBOCICLIB
     Indication: Metastasis
     Route: 065
  4. EXEMESTANE [Suspect]
     Active Substance: EXEMESTANE
     Indication: Metastasis
     Route: 065
  5. EVEROLIMUS [Suspect]
     Active Substance: EVEROLIMUS
     Indication: Metastasis
     Route: 065
  6. DOXORUBICIN [Suspect]
     Active Substance: DOXORUBICIN
     Indication: Metastasis
     Route: 065
  7. TALAZOPARIB [Suspect]
     Active Substance: TALAZOPARIB
     Indication: Metastasis
     Route: 065

REACTIONS (2)
  - Pneumonitis [Recovered/Resolved]
  - Neoplasm progression [Recovered/Resolved]
